FAERS Safety Report 19371194 (Version 1)
Quarter: 2021Q2

REPORT INFORMATION
  Report Type: Spontaneous
  Country: US (occurrence: US)
  Receive Date: 20210604
  Receipt Date: 20210604
  Transmission Date: 20210717
  Serious: No
  Sender: FDA-Public Use
  Company Number: US-JNJFOC-20210600296

PATIENT
  Age: 15 Year
  Sex: Female
  Weight: 104.33 kg

DRUGS (6)
  1. BENADRYL [Suspect]
     Active Substance: DIPHENHYDRAMINE HYDROCHLORIDE
     Indication: URTICARIA
     Route: 048
     Dates: start: 20210519
  2. TYLENOL EXTRA STRENGTH [Concomitant]
     Active Substance: ACETAMINOPHEN
     Indication: DYSMENORRHOEA
     Route: 065
     Dates: start: 20210517
  3. ZYRTEC [Suspect]
     Active Substance: CETIRIZINE HYDROCHLORIDE
     Indication: URTICARIA
     Route: 048
     Dates: start: 20210519
  4. MOTRIN IB [Concomitant]
     Active Substance: IBUPROFEN
     Indication: DYSMENORRHOEA
     Dosage: 400 MG
     Route: 065
     Dates: start: 20210518, end: 20210518
  5. COVID?19 VACCINE NOS. [Concomitant]
     Active Substance: COVID-19 VACCINE NOS
     Indication: IMMUNISATION
     Route: 065
     Dates: start: 20210516
  6. MOTRIN IB [Concomitant]
     Active Substance: IBUPROFEN
     Dosage: ABOUT 1000MG IN 24 HR PERIOD
     Route: 065
     Dates: start: 20210519, end: 20210519

REACTIONS (1)
  - Product use in unapproved indication [Unknown]

NARRATIVE: CASE EVENT DATE: 20210519
